FAERS Safety Report 8514400-1 (Version None)
Quarter: 2012Q3

REPORT INFORMATION
  Report Type: 
  Country: None (occurrence: None)
  Receive Date: 20120717
  Receipt Date: 20120712
  Transmission Date: 20120928
  Serious: No
  Sender: FDA-Public Use
  Company Number: US-B.I. PHARMACEUTICALS,INC./RIDGEFIELD-2012-BP-15561BP

PATIENT
  Sex: Female

DRUGS (5)
  1. METFORMIN HYDROCHLORIDE [Concomitant]
     Dosage: 1000 MG
     Route: 048
  2. TAMOXIFEN CITRATE [Concomitant]
     Indication: BREAST CANCER
     Dosage: 20 MG
     Route: 048
  3. METFORMIN HYDROCHLORIDE [Concomitant]
     Indication: DIABETES MELLITUS
     Dosage: 500 MG
     Route: 048
  4. XALATAN [Concomitant]
     Indication: GLAUCOMA
     Route: 047
  5. TRADJENTA [Suspect]
     Indication: TYPE 2 DIABETES MELLITUS
     Dosage: 5 MG
     Route: 048
     Dates: start: 20120711

REACTIONS (2)
  - SINUS HEADACHE [None]
  - HYPOTENSION [None]
